FAERS Safety Report 6082657-5 (Version None)
Quarter: 2009Q1

REPORT INFORMATION
  Report Type: 
  Country: None (occurrence: None)
  Receive Date: 20090218
  Receipt Date: 20090206
  Transmission Date: 20090719
  Serious: Yes (Hospitalization, Other)
  Sender: FDA-Public Use
  Company Number: PHHY2009JP01333

PATIENT
  Sex: Male
  Weight: 71 kg

DRUGS (4)
  1. VOLTAREN [Suspect]
     Indication: PYREXIA
     Dosage: 50 MG/DAY
     Route: 054
     Dates: start: 20090105, end: 20090105
  2. PL [Suspect]
     Indication: PYREXIA
     Dosage: 3 G
     Route: 048
     Dates: start: 20090105, end: 20090105
  3. SOLANTAL [Suspect]
     Indication: PYREXIA
     Dosage: 300 MG
     Route: 048
     Dates: start: 20090105, end: 20090105
  4. GARENOXACIN (GENINAX) [Concomitant]
     Indication: INFECTION
     Dosage: 400 MG
     Route: 048
     Dates: start: 20090105, end: 20090105

REACTIONS (10)
  - BLOOD PRESSURE DECREASED [None]
  - BLOOD PRESSURE SYSTOLIC DECREASED [None]
  - CHEST PAIN [None]
  - DIZZINESS [None]
  - HEART RATE DECREASED [None]
  - HYPOTHERMIA [None]
  - INFLAMMATION [None]
  - MYOCARDIAL ISCHAEMIA [None]
  - PROSTATITIS [None]
  - SHOCK [None]
